FAERS Safety Report 8205984-1 (Version None)
Quarter: 2012Q1

REPORT INFORMATION
  Report Type: 
  Country: None (occurrence: None)
  Receive Date: 20120313
  Receipt Date: 20120306
  Transmission Date: 20120608
  Serious: No
  Sender: FDA-Public Use
  Company Number: US-US-EMD SERONO, INC.-7018507

PATIENT
  Sex: Female

DRUGS (9)
  1. STATIN DRUG [Concomitant]
     Indication: CEREBROVASCULAR ACCIDENT
  2. CHANTIX [Concomitant]
     Indication: SMOKING CESSATION THERAPY
     Route: 048
     Dates: start: 20120117
  3. ASPIRIN [Concomitant]
     Indication: CEREBROVASCULAR ACCIDENT
  4. REBIF [Suspect]
     Indication: SECONDARY PROGRESSIVE MULTIPLE SCLEROSIS
     Route: 058
     Dates: start: 20080402
  5. REBIF [Suspect]
     Route: 058
     Dates: start: 20100901
  6. TRAZODONE HCL [Concomitant]
     Indication: PRODUCT USED FOR UNKNOWN INDICATION
  7. ZOLOFT [Concomitant]
     Indication: DEPRESSION
  8. NORVASC [Concomitant]
     Indication: HYPERTENSION
     Dates: start: 20110101
  9. SIMVASTATIN [Concomitant]
     Indication: BLOOD CHOLESTEROL INCREASED

REACTIONS (1)
  - PAIN [None]
